FAERS Safety Report 21536982 (Version 1)
Quarter: 2022Q4

REPORT INFORMATION
  Report Type: Spontaneous
  Country: DK (occurrence: DK)
  Receive Date: 20221101
  Receipt Date: 20221101
  Transmission Date: 20230113
  Serious: Yes (Hospitalization)
  Sender: FDA-Public Use
  Company Number: None

PATIENT

DRUGS (6)
  1. NOCDURNA [Suspect]
     Active Substance: DESMOPRESSIN ACETATE
     Indication: Nocturia
     Dosage: 50 UG, 1 TIME DAILY
     Route: 048
     Dates: start: 20220922, end: 20221001
  2. VENLAFAXINE HYDROCHLORIDE [Suspect]
     Active Substance: VENLAFAXINE HYDROCHLORIDE
     Indication: Anxiety
     Dosage: 75 MG, 1 TIME DAILY
     Route: 048
     Dates: start: 20220912, end: 20221001
  3. BETOLVEX [CYANOCOBALAMIN-TANNIN COMPLEX] [Concomitant]
     Indication: Vitamin supplementation
     Dosage: UNK, BUT START DATE AT LEAST SINCE MAY-2020
     Route: 065
  4. SINEMET [Concomitant]
     Active Substance: CARBIDOPA\LEVODOPA
     Indication: Parkinson^s disease
     Dosage: UNKNOWN START DATE BUT AT LEAST SINCE JANUARY 2020
     Route: 065
  5. CARBIDOPA\LEVODOPA [Concomitant]
     Active Substance: CARBIDOPA\LEVODOPA
     Indication: Parkinson^s disease
     Route: 065
     Dates: start: 20160204
  6. BRINTELLIX [Concomitant]
     Active Substance: VORTIOXETINE HYDROBROMIDE
     Indication: Depression
     Route: 065
     Dates: start: 20200916

REACTIONS (2)
  - Dizziness [Unknown]
  - Fall [Recovered/Resolved with Sequelae]

NARRATIVE: CASE EVENT DATE: 20220930
